FAERS Safety Report 22384888 (Version 3)
Quarter: 2023Q4

REPORT INFORMATION
  Report Type: Spontaneous
  Country: ES (occurrence: ES)
  Receive Date: 20230530
  Receipt Date: 20231024
  Transmission Date: 20240110
  Serious: Yes (Other)
  Sender: FDA-Public Use
  Company Number: None

PATIENT
  Age: 60 Year
  Sex: Male
  Weight: 100 kg

DRUGS (4)
  1. KETAMINE HYDROCHLORIDE [Suspect]
     Active Substance: KETAMINE HYDROCHLORIDE
     Indication: Diabetic neuropathy
     Dosage: 30 MG, 3X/DAY
     Route: 051
     Dates: start: 20230308, end: 20230425
  2. DULOXETINE [Concomitant]
     Active Substance: DULOXETINE
     Indication: Diabetic neuropathy
     Dosage: 120 MG, 1X/DAY
     Route: 048
     Dates: start: 20210708
  3. GABAPENTIN [Concomitant]
     Active Substance: GABAPENTIN
     Indication: Diabetic neuropathy
     Dosage: FREQ:8 H
     Route: 048
     Dates: start: 20210708
  4. OXYCODONE [Concomitant]
     Active Substance: OXYCODONE
     Indication: Diabetic neuropathy
     Dosage: 20 MG, 1X/DAY
     Route: 048
     Dates: start: 20220405

REACTIONS (4)
  - Toxicity to various agents [Recovered/Resolved]
  - Dizziness [Recovered/Resolved]
  - Somnolence [Recovered/Resolved]
  - Off label use [Unknown]

NARRATIVE: CASE EVENT DATE: 20230308
